FAERS Safety Report 15156027 (Version 3)
Quarter: 2018Q3

REPORT INFORMATION
  Report Type: Spontaneous
  Country: CN (occurrence: CN)
  Receive Date: 20180717
  Receipt Date: 20180803
  Transmission Date: 20181010
  Serious: Yes (Hospitalization)
  Sender: FDA-Public Use
  Company Number: PHHY2018CN046676

PATIENT

DRUGS (1)
  1. TEGRETOL [Suspect]
     Active Substance: CARBAMAZEPINE
     Indication: CENTRAL PAIN SYNDROME
     Route: 048

REACTIONS (3)
  - Rash generalised [Recovered/Resolved]
  - Oral mucosal eruption [Recovering/Resolving]
  - Swelling face [Unknown]
